FAERS Safety Report 7720100-8 (Version None)
Quarter: 2011Q3

REPORT INFORMATION
  Report Type: 
  Country: None (occurrence: None)
  Receive Date: 20110824
  Receipt Date: 20110809
  Transmission Date: 20111222
  Serious: Yes (Hospitalization)
  Sender: FDA-Public Use
  Company Number: 2011SP002752

PATIENT
  Age: 8 Year
  Sex: Male
  Weight: 28 kg

DRUGS (1)
  1. ALVESCO [Suspect]
     Dosage: 80 UG;QD;INHALATION
     Route: 055
     Dates: start: 20110517, end: 20110809

REACTIONS (1)
  - MENINGITIS BACTERIAL [None]
